FAERS Safety Report 16651307 (Version 2)
Quarter: 2019Q3

REPORT INFORMATION
  Report Type: Spontaneous
  Country: US (occurrence: US)
  Receive Date: 20190731
  Receipt Date: 20190802
  Transmission Date: 20191004
  Serious: Yes (Other)
  Sender: FDA-Public Use
  Company Number: US-PACIRA-201800262

PATIENT

DRUGS (3)
  1. LIDOCAINE. [Suspect]
     Active Substance: LIDOCAINE
     Dosage: 2%, 3-5 ML
     Route: 065
  2. EXPAREL [Suspect]
     Active Substance: BUPIVACAINE
     Indication: NERVE BLOCK
     Dosage: 10 ML, 133MG INJECTION
  3. BUPIVACAINE. [Suspect]
     Active Substance: BUPIVACAINE
     Indication: NERVE BLOCK
     Dosage: 5 ML OF 0.25%
     Route: 065

REACTIONS (10)
  - Pulmonary embolism [Unknown]
  - Dysphonia [Unknown]
  - Urinary retention [Unknown]
  - Dyspnoea [Unknown]
  - Visual impairment [Unknown]
  - Dysgeusia [Unknown]
  - Dizziness [Unknown]
  - Tinnitus [Unknown]
  - Atrial fibrillation [Unknown]
  - Phrenic nerve paralysis [Unknown]
